FAERS Safety Report 22053892 (Version 1)
Quarter: 2023Q1

REPORT INFORMATION
  Report Type: Report from Study
  Country: US (occurrence: US)
  Receive Date: 20230302
  Receipt Date: 20230302
  Transmission Date: 20230417
  Serious: Yes (Hospitalization)
  Sender: FDA-Public Use
  Company Number: US-ABBVIE-4323269

PATIENT
  Age: 54 Year
  Sex: Female

DRUGS (1)
  1. RINVOQ [Suspect]
     Active Substance: UPADACITINIB
     Indication: Rheumatoid arthritis
     Dosage: FORM STRENGTH 15 MG
     Route: 048
     Dates: start: 20220724, end: 20230216

REACTIONS (8)
  - Sepsis [Unknown]
  - Rib fracture [Unknown]
  - Bursitis [Unknown]
  - White blood cell count decreased [Unknown]
  - Eyelid ptosis [Not Recovered/Not Resolved]
  - Influenza [Recovered/Resolved]
  - Fall [Unknown]
  - Bronchitis [Recovered/Resolved]

NARRATIVE: CASE EVENT DATE: 20221123
